FAERS Safety Report 7599598-4 (Version None)
Quarter: 2011Q3

REPORT INFORMATION
  Report Type: 
  Country: None (occurrence: None)
  Receive Date: 20110711
  Receipt Date: 20110125
  Transmission Date: 20111222
  Serious: Yes (Death, Hospitalization, Other)
  Sender: FDA-Public Use
  Company Number: US-BAYER-201032105NA

PATIENT
  Age: 82 Year
  Sex: Female
  Weight: 77.098 kg

DRUGS (24)
  1. TRASYLOL [Suspect]
     Indication: CORONARY ARTERY BYPASS
  2. AMLODIPINE [Concomitant]
  3. VANCOMYCIN [Concomitant]
     Dosage: 1 G,CONTINUING
     Route: 042
  4. HEPARIN [Concomitant]
     Dosage: 35,000 UNITS
     Route: 042
  5. MILRINONE [Concomitant]
     Dosage: TITRATED
     Route: 042
  6. TRASYLOL [Suspect]
     Indication: PRODUCT USED FOR UNKNOWN INDICATION
     Dosage: 200 ML FOLLOWED BY CONTINUOUS 50 ML INFUSION
     Route: 042
     Dates: start: 20070711, end: 20070711
  7. LIDOCAINE [Concomitant]
     Dosage: 50 MG, UNK
     Route: 042
  8. ZAROXOLYN [Concomitant]
     Dosage: 5 MG, QD
     Route: 048
  9. LIPITOR [Concomitant]
  10. NORVASC [Concomitant]
     Dosage: 5 MG, QD
     Route: 048
  11. FENTANYL [Concomitant]
     Dosage: TITRATED
     Route: 042
  12. NOREPINEPHRINE BITARTRATE [Concomitant]
     Dosage: TITRATED
     Route: 042
  13. COUMADIN [Concomitant]
     Dosage: 7.5 MG, QD
     Route: 048
  14. FUROSEMIDE [Concomitant]
     Dosage: 80 MG, QD
     Route: 048
     Dates: start: 20060101
  15. DIGOXIN [Concomitant]
     Dosage: 0.125 MG, QD
     Route: 048
  16. LISINOPRIL [Concomitant]
     Dosage: 10 MG, QD
     Route: 048
  17. SPIRONOLACTONE [Concomitant]
     Dosage: 25 MG, QD
     Route: 048
  18. NEXIUM [Concomitant]
     Dosage: 40 MG, QD
     Route: 048
  19. ATORVASTATIN [Concomitant]
     Dosage: 10 MG,NIGHTLY
     Route: 048
  20. METOPROLOL TARTRATE [Concomitant]
     Dosage: 50 MG, BID
  21. TRASYLOL [Suspect]
     Indication: MITRAL VALVE REPAIR
  22. ACETYLSALICYLIC ACID SRT [Concomitant]
  23. AMIODARONE HCL [Concomitant]
     Dosage: TITRATED
     Route: 042
  24. NITROGLYCERIN [Concomitant]
     Indication: CHEST PAIN
     Dosage: 0.5 MG EVERY 5 MINUTES AS NEEDED
     Route: 048

REACTIONS (12)
  - EMOTIONAL DISTRESS [None]
  - ANXIETY [None]
  - PAIN [None]
  - RENAL IMPAIRMENT [None]
  - UNEVALUABLE EVENT [None]
  - FEAR [None]
  - MULTI-ORGAN FAILURE [None]
  - DEATH [None]
  - RENAL INJURY [None]
  - RENAL FAILURE [None]
  - INJURY [None]
  - STRESS [None]
